FAERS Safety Report 16244500 (Version 1)
Quarter: 2019Q2

REPORT INFORMATION
  Report Type: Spontaneous
  Country: JP (occurrence: JP)
  Receive Date: 20190426
  Receipt Date: 20190426
  Transmission Date: 20190711
  Serious: Yes (Other)
  Sender: FDA-Public Use
  Company Number: JP-009507513-1904JPN011937

PATIENT
  Age: 31 Year
  Sex: Female

DRUGS (2)
  1. TEMOZOLOMIDE. [Suspect]
     Active Substance: TEMOZOLOMIDE
     Indication: ANAPLASTIC ASTROCYTOMA
     Dosage: 150 MILLIGRAM/SQ. METER, 15 CYCLES
     Route: 048
  2. TEMOZOLOMIDE. [Suspect]
     Active Substance: TEMOZOLOMIDE
     Dosage: 150 MILLIGRAM/SQ. METER, 11 CYCLES
     Route: 048

REACTIONS (3)
  - Lymphopenia [Unknown]
  - Off label use [Unknown]
  - Intraventricular haemorrhage [Recovered/Resolved]
